FAERS Safety Report 17474952 (Version 1)
Quarter: 2020Q1

REPORT INFORMATION
  Report Type: Spontaneous
  Country: US (occurrence: US)
  Receive Date: 20191013
  Receipt Date: 20191013
  Transmission Date: 20200409
  Serious: Yes (Life-Threatening, Disabling)
  Sender: FDA-Public Use
  Company Number: None

PATIENT
  Age: 15 Year
  Sex: Male

DRUGS (4)
  1. VAPING THC [Suspect]
     Active Substance: .DELTA.8-TETRAHYDROCANNABINOL\DEVICE\HERBALS
     Indication: NICOTINIC STOMATITIS
  2. OTC MULTI-VITAMIN [Concomitant]
  3. VAPING THC [Suspect]
     Active Substance: .DELTA.8-TETRAHYDROCANNABINOL\DEVICE\HERBALS
     Indication: GENERALISED TONIC-CLONIC SEIZURE
  4. VAPING THC [Suspect]
     Active Substance: .DELTA.8-TETRAHYDROCANNABINOL\DEVICE\HERBALS
     Indication: RETINAL DRUSEN

REACTIONS (3)
  - Stomatitis [None]
  - Generalised tonic-clonic seizure [None]
  - Retinal disorder [None]
